FAERS Safety Report 10410602 (Version 1)
Quarter: 2014Q3

REPORT INFORMATION
  Report Type: Spontaneous
  Country: US (occurrence: US)
  Receive Date: 20140826
  Receipt Date: 20140826
  Transmission Date: 20150326
  Serious: No
  Sender: FDA-Public Use
  Company Number: US-BRISTOL-MYERS SQUIBB COMPANY-21155411

PATIENT
  Sex: Female

DRUGS (1)
  1. KENALOG-40 [Suspect]
     Active Substance: TRIAMCINOLONE ACETONIDE
     Indication: SINUSITIS
     Dosage: DOUBLE DOSE 80 MG

REACTIONS (5)
  - Neuropathy peripheral [Unknown]
  - Burning sensation [Unknown]
  - Overdose [Unknown]
  - Arthralgia [Unknown]
  - Menstrual disorder [Unknown]
